FAERS Safety Report 22261120 (Version 3)
Quarter: 2023Q4

REPORT INFORMATION
  Report Type: Spontaneous
  Country: US (occurrence: US)
  Receive Date: 20230427
  Receipt Date: 20231006
  Transmission Date: 20240110
  Serious: Yes (Other)
  Sender: FDA-Public Use
  Company Number: US-Stemline Therapeutics, Inc.-2023ST000566

PATIENT
  Age: 77 Year
  Sex: Female

DRUGS (2)
  1. ORSERDU [Suspect]
     Active Substance: ELACESTRANT
     Indication: Product used for unknown indication
     Route: 048
     Dates: start: 20230406
  2. ORSERDU [Suspect]
     Active Substance: ELACESTRANT
     Dosage: 344 MG (4 TABLETS) ONCE DAILY
     Route: 048
     Dates: start: 20230406

REACTIONS (6)
  - Arthritis [Not Recovered/Not Resolved]
  - Sinusitis bacterial [Recovering/Resolving]
  - Intentional product use issue [Not Recovered/Not Resolved]
  - Product use complaint [Unknown]
  - Hypersensitivity [Recovering/Resolving]
  - Abdominal pain upper [Not Recovered/Not Resolved]
